FAERS Safety Report 14753172 (Version 1)
Quarter: 2018Q2

REPORT INFORMATION
  Report Type: Other
  Country: NL (occurrence: NL)
  Receive Date: 20180412
  Receipt Date: 20180412
  Transmission Date: 20180711
  Serious: Yes (Other)
  Sender: FDA-Public Use
  Company Number: NL-RARE DISEASE THERAPEUTICS, INC.-2045682

PATIENT
  Age: 31 Year
  Sex: Male
  Weight: 89 kg

DRUGS (5)
  1. MERCAPTOPURINE. [Suspect]
     Active Substance: MERCAPTOPURINE
     Route: 065
  2. ALLOPURINOL. [Suspect]
     Active Substance: ALLOPURINOL
     Route: 065
  3. MERCAPTOPURINE. [Suspect]
     Active Substance: MERCAPTOPURINE
     Route: 065
  4. MESALAZINE [Suspect]
     Active Substance: MESALAMINE
     Route: 065
  5. PURIXAN [Suspect]
     Active Substance: MERCAPTOPURINE
     Indication: COLITIS ULCERATIVE
     Dates: start: 20171029

REACTIONS (5)
  - Bone marrow failure [Unknown]
  - Alanine aminotransferase increased [Unknown]
  - Off label use [Unknown]
  - Leukopenia [Recovered/Resolved]
  - Anaemia [Recovering/Resolving]
